FAERS Safety Report 21213617 (Version 7)
Quarter: 2022Q4

REPORT INFORMATION
  Report Type: Spontaneous
  Country: ES (occurrence: ES)
  Receive Date: 20220816
  Receipt Date: 20221227
  Transmission Date: 20230113
  Serious: Yes (Hospitalization, Other)
  Sender: FDA-Public Use
  Company Number: ES-GT-20220909

PATIENT
  Age: 52 Year
  Sex: Male

DRUGS (26)
  1. DARUNAVIR [Suspect]
     Active Substance: DARUNAVIR
     Indication: HIV antibody
     Dosage: 600 MG, 2X PER DAY
     Route: 065
     Dates: start: 20100824
  2. DARUNAVIR [Suspect]
     Active Substance: DARUNAVIR
     Indication: HIV infection
     Route: 065
     Dates: start: 20140527
  3. QUETIAPINE [Interacting]
     Active Substance: QUETIAPINE
     Indication: Schizophrenia
     Dosage: 300 MG, 2X PER DAY
     Route: 065
     Dates: start: 20170426
  4. FENOFIBRATE [Concomitant]
     Active Substance: FENOFIBRATE
     Indication: Hyperlipidaemia
     Dosage: 145 MG, 1X PER DAY
     Route: 065
     Dates: start: 20200420
  5. FENOFIBRATE [Concomitant]
     Active Substance: FENOFIBRATE
     Indication: Pain
     Dosage: 145 MG, 1X PER DAY
     Route: 065
     Dates: start: 20211015
  6. DULAGLUTIDE [Concomitant]
     Active Substance: DULAGLUTIDE
     Indication: Diabetes mellitus
     Dosage: 1.5 MG 1 X PER WEEK
     Route: 065
     Dates: start: 20190529
  7. DULAGLUTIDE [Concomitant]
     Active Substance: DULAGLUTIDE
     Route: 065
     Dates: start: 20190313
  8. ETRAVIRINE [Concomitant]
     Active Substance: ETRAVIRINE
     Indication: HIV infection
     Dosage: 200 MG, 1X PER DAY
     Route: 065
     Dates: start: 20140527
  9. ETRAVIRINE [Concomitant]
     Active Substance: ETRAVIRINE
     Indication: Diabetes mellitus
  10. CLORAZEPIC ACID [Concomitant]
     Active Substance: CLORAZEPIC ACID
     Indication: Generalised anxiety disorder
     Dosage: 15 MG/ 4.5H
     Route: 065
     Dates: start: 20190221
  11. INSULIN ASPART [Concomitant]
     Active Substance: INSULIN ASPART
     Indication: Diabetes mellitus
     Dosage: 10 UNK, 3X PER DAY
     Route: 065
     Dates: start: 20200707
  12. INSULIN ASPART [Concomitant]
     Active Substance: INSULIN ASPART
     Indication: HIV infection
     Route: 065
     Dates: start: 20140527
  13. LORMETAZEPAM [Concomitant]
     Active Substance: LORMETAZEPAM
     Indication: Hypnotherapy
     Dosage: 2 MG, 1X PER DAY
     Route: 065
     Dates: start: 20171216
  14. LORMETAZEPAM [Concomitant]
     Active Substance: LORMETAZEPAM
     Indication: Ulcer
     Route: 065
     Dates: start: 20191127
  15. ROSUVASTATIN [Concomitant]
     Active Substance: ROSUVASTATIN
     Indication: Hyperlipidaemia
     Dosage: 5 MG, 1X PER DAY
     Route: 065
     Dates: start: 20180511
  16. ROSUVASTATIN [Concomitant]
     Active Substance: ROSUVASTATIN
     Indication: Hyperlipidaemia
     Route: 065
     Dates: start: 20200429
  17. METAMIZOLE [Concomitant]
     Active Substance: METAMIZOLE
     Indication: Analgesic therapy
     Dosage: 575 MG, 3X PER DAY
     Route: 065
     Dates: start: 20210707
  18. METAMIZOLE [Concomitant]
     Active Substance: METAMIZOLE
     Indication: Anxiolytic therapy
     Route: 065
     Dates: start: 20190221
  19. ACETAMINOPHEN [Concomitant]
     Active Substance: ACETAMINOPHEN
     Indication: Analgesic therapy
     Dosage: 1 G, 2X PER DAY
     Route: 065
     Dates: start: 20210721
  20. ACETAMINOPHEN [Concomitant]
     Active Substance: ACETAMINOPHEN
     Indication: Pain
     Route: 065
     Dates: start: 20150529
  21. ACETAMINOPHEN [Concomitant]
     Active Substance: ACETAMINOPHEN
     Indication: Diabetes mellitus
  22. INSULIN GLARGINE [Concomitant]
     Active Substance: INSULIN GLARGINE
     Indication: Diabetes mellitus
     Dosage: 60 IU, 1X PER DAY
     Route: 065
     Dates: start: 20190527
  23. LOSARTAN [Concomitant]
     Active Substance: LOSARTAN
     Indication: Hypertension
     Dosage: 100 MG, 1X PER DAY
     Route: 065
     Dates: start: 20181013
  24. OMEPRAZOLE [Concomitant]
     Active Substance: OMEPRAZOLE
     Indication: Ulcer
     Dosage: 40 MG, 1X PER DAY
     Route: 065
     Dates: start: 20191127
  25. ZOLPIDEM [Concomitant]
     Active Substance: ZOLPIDEM TARTRATE
     Indication: Hypnotherapy
     Dosage: 10 MG, 1X PER DAY
     Route: 065
     Dates: start: 20190313
  26. GABAPENTIN [Concomitant]
     Active Substance: GABAPENTIN
     Indication: Analgesic therapy
     Dates: start: 20211015

REACTIONS (14)
  - Nervousness [Recovered/Resolved]
  - Tachycardia [Recovered/Resolved]
  - Confusional state [Recovered/Resolved]
  - Agitation [Recovered/Resolved]
  - Drug interaction [Recovered/Resolved]
  - Drug level increased [Recovered/Resolved]
  - Insomnia [Recovered/Resolved]
  - Insomnia [Recovered/Resolved]
  - Confusional state [Recovered/Resolved]
  - Tachycardia [Recovered/Resolved]
  - Restlessness [Recovered/Resolved]
  - Condition aggravated [Recovered/Resolved]
  - Drug interaction [Recovered/Resolved]
  - Nervousness [Recovered/Resolved]
